FAERS Safety Report 19450719 (Version 1)
Quarter: 2021Q2

REPORT INFORMATION
  Report Type: Report from Study
  Country: US (occurrence: US)
  Receive Date: 20210622
  Receipt Date: 20210622
  Transmission Date: 20210717
  Serious: Yes (Hospitalization)
  Sender: FDA-Public Use
  Company Number: US-AMGEN-USACT2021093422

PATIENT
  Age: 71 Year
  Sex: Female

DRUGS (5)
  1. PANITUMUMAB [Suspect]
     Active Substance: PANITUMUMAB
     Indication: COLORECTAL ADENOCARCINOMA
  2. PANITUMUMAB [Suspect]
     Active Substance: PANITUMUMAB
     Indication: K-RAS GENE MUTATION
     Dosage: 350 MILLIGRAM
     Route: 042
     Dates: start: 20210413
  3. AMG 510 [Suspect]
     Active Substance: AMG-510
     Indication: COLORECTAL ADENOCARCINOMA
  4. LASIX [Concomitant]
     Active Substance: FUROSEMIDE
     Dosage: 20 MILLIGRAM, QD
  5. AMG 510 [Suspect]
     Active Substance: AMG-510
     Indication: K-RAS GENE MUTATION
     Dosage: 960 MILLIGRAM
     Route: 048
     Dates: start: 20210413

REACTIONS (3)
  - Skin infection [Not Recovered/Not Resolved]
  - Oedema peripheral [Not Recovered/Not Resolved]
  - Dermatitis acneiform [Not Recovered/Not Resolved]

NARRATIVE: CASE EVENT DATE: 20210615
